FAERS Safety Report 21691363 (Version 2)
Quarter: 2023Q2

REPORT INFORMATION
  Report Type: Report from Study
  Country: AR (occurrence: AR)
  Receive Date: 20221207
  Receipt Date: 20230620
  Transmission Date: 20230722
  Serious: Yes (Other)
  Sender: FDA-Public Use
  Company Number: AR-ABBVIE-4224851

PATIENT
  Age: 62 Year
  Sex: Male

DRUGS (4)
  1. HUMIRA [Suspect]
     Active Substance: ADALIMUMAB
     Indication: Psoriatic arthropathy
     Dosage: FORM STRENGTH 40 MG?LAST ADMIN DATE- 2022
     Route: 058
     Dates: start: 20220107
  2. CALMADOR (tramadol) [Concomitant]
     Indication: Product used for unknown indication
  3. MELOXICAM [Concomitant]
     Active Substance: MELOXICAM
     Indication: Product used for unknown indication
  4. PRIDINOL [Concomitant]
     Active Substance: PRIDINOL
     Indication: Product used for unknown indication

REACTIONS (7)
  - Hip arthroplasty [Recovered/Resolved]
  - Gait disturbance [Unknown]
  - Arthralgia [Not Recovered/Not Resolved]
  - Influenza [Recovering/Resolving]
  - Medical device pain [Unknown]
  - Respiratory tract infection viral [Unknown]
  - Osteoarthritis [Unknown]

NARRATIVE: CASE EVENT DATE: 20220401
